FAERS Safety Report 4878093-7 (Version None)
Quarter: 2006Q1

REPORT INFORMATION
  Report Type: 
  Country: None (occurrence: None)
  Receive Date: 20060110
  Receipt Date: 20051229
  Transmission Date: 20060701
  Serious: Yes (Hospitalization, Other)
  Sender: FDA-Public Use
  Company Number: HQWYE165103JAN06

PATIENT
  Age: 89 Year
  Sex: Female

DRUGS (9)
  1. OROKEN (CEFIXIME) [Suspect]
     Dosage: ORAL
     Route: 048
     Dates: end: 20050917
  2. PREVISCAN (FLUINDIONE) [Concomitant]
     Dosage: ORAL
     Route: 048
  3. FUROSEMIDE [Concomitant]
  4. EXELON [Concomitant]
  5. EQUANIL [Concomitant]
  6. AMLODIPINE BESYLATE [Concomitant]
  7. POTASSIUM CHLORIDE [Concomitant]
  8. ACETAMINOPHEN [Concomitant]
  9. DEBRIDAT (TRIMEBUTINE MALEATE) [Concomitant]

REACTIONS (2)
  - DRUG INTERACTION [None]
  - HAEMATOMA [None]
